FAERS Safety Report 5143590-6 (Version None)
Quarter: 2006Q4

REPORT INFORMATION
  Report Type: 
  Country: None (occurrence: None)
  Receive Date: 20061103
  Receipt Date: 20060821
  Transmission Date: 20070319
  Serious: Yes (Other)
  Sender: FDA-Public Use
  Company Number: DE-ELI_LILLY_AND_COMPANY-DE200609001647

PATIENT
  Age: 29 Year
  Sex: Female
  Weight: 62 kg

DRUGS (5)
  1. ZYPREXA [Suspect]
     Indication: SCHIZOAFFECTIVE DISORDER
     Dosage: 7.5 MG, DAILY (1/D)
     Route: 048
     Dates: start: 20050601, end: 20051005
  2. ZYPREXA [Suspect]
     Dosage: 2.5 MG, DAILY (1/D)
     Route: 048
     Dates: start: 20060425, end: 20060607
  3. FEMIBION /GFR/ [Concomitant]
     Route: 048
     Dates: start: 20051101, end: 20060607
  4. JODID /GFR/ [Concomitant]
     Dosage: 200 UG, UNK
     Route: 048
     Dates: start: 20051101, end: 20060607
  5. IRON [Concomitant]
     Route: 048
     Dates: start: 20060301, end: 20060607

REACTIONS (4)
  - CAESAREAN SECTION [None]
  - DRUG EXPOSURE DURING PREGNANCY [None]
  - HYPERVENTILATION [None]
  - UTERINE HYPOTONUS [None]
